FAERS Safety Report 7730200-4 (Version None)
Quarter: 2011Q3

REPORT INFORMATION
  Report Type: 
  Country: None (occurrence: None)
  Receive Date: 20110906
  Receipt Date: 20110831
  Transmission Date: 20111222
  Serious: Yes (Death, Hospitalization, Other)
  Sender: FDA-Public Use
  Company Number: PHHY2011JP49059

PATIENT
  Sex: Female
  Weight: 41 kg

DRUGS (1)
  1. FEMARA [Suspect]
     Indication: BREAST CANCER
     Dosage: 2.5 MG, DAILY
     Route: 048
     Dates: start: 20110511, end: 20110530

REACTIONS (10)
  - GASTROINTESTINAL HAEMORRHAGE [None]
  - TUMOUR LYSIS SYNDROME [None]
  - HYPERKALAEMIA [None]
  - LOSS OF CONSCIOUSNESS [None]
  - WHITE BLOOD CELL COUNT DECREASED [None]
  - BRADYCARDIA [None]
  - PLATELET COUNT DECREASED [None]
  - NEUTROPHIL COUNT INCREASED [None]
  - BASOPHIL COUNT INCREASED [None]
  - MUSCULAR WEAKNESS [None]
